FAERS Safety Report 5656604-1 (Version None)
Quarter: 2008Q1

REPORT INFORMATION
  Report Type: 
  Country: None (occurrence: None)
  Receive Date: 20080219
  Receipt Date: 20071218
  Transmission Date: 20080703
  Serious: No
  Sender: FDA-Public Use
  Company Number: WAES 0712USA08090

PATIENT
  Age: 75 Year
  Sex: Female

DRUGS (4)
  1. JANUVIA [Suspect]
     Indication: DIABETES MELLITUS
     Dosage: 50 MG/DAILY/PO
     Route: 048
     Dates: start: 20071018, end: 20071213
  2. NEURONTIN [Concomitant]
  3. NEXIUM [Concomitant]
  4. TYLENOL W/ CODEINE NO. 3 [Concomitant]

REACTIONS (1)
  - PLEURAL EFFUSION [None]
